FAERS Safety Report 20619088 (Version 1)
Quarter: 2022Q1

REPORT INFORMATION
  Report Type: Report from Study
  Country: US (occurrence: US)
  Receive Date: 20220322
  Receipt Date: 20220322
  Transmission Date: 20220423
  Serious: Yes (Other)
  Sender: FDA-Public Use
  Company Number: US-JNJFOC-20220323880

PATIENT
  Age: 57 Year
  Sex: Female

DRUGS (2)
  1. SPRAVATO [Suspect]
     Active Substance: ESKETAMINE
     Indication: Depression
     Dosage: 56 MG, 1 TOTAL DOSE
     Dates: start: 20220301, end: 20220301
  2. SPRAVATO [Suspect]
     Active Substance: ESKETAMINE
     Dates: start: 20220304, end: 20220304

REACTIONS (7)
  - Suicidal ideation [Unknown]
  - Dissociation [Recovered/Resolved]
  - Head discomfort [Unknown]
  - Constipation [Unknown]
  - Euphoric mood [Unknown]
  - Nausea [Unknown]
  - Feeling abnormal [Unknown]

NARRATIVE: CASE EVENT DATE: 20220301
